FAERS Safety Report 4444433-6 (Version None)
Quarter: 2004Q3

REPORT INFORMATION
  Report Type: 
  Country: None (occurrence: None)
  Receive Date: 20040902
  Receipt Date: 20040812
  Transmission Date: 20050211
  Serious: Yes (Death, Other)
  Sender: FDA-Public Use
  Company Number: USA040875374

PATIENT
  Age: 55 Year
  Sex: Female
  Weight: 123 kg

DRUGS (10)
  1. XIGRIS [Suspect]
     Indication: SEPSIS
     Dosage: 24 UG/KG/HR
     Dates: start: 20040114
  2. CEFTRIAXONE [Concomitant]
  3. METRONIDAZOLE [Concomitant]
  4. INSULIN [Concomitant]
  5. LEVOPHED [Concomitant]
  6. SODIUM BICARBONATE [Concomitant]
  7. ALBUTEROL SULFATE W/IPRATOPIUM BROMIDE [Concomitant]
  8. FLOVENT [Concomitant]
  9. FAMOTIDINE [Concomitant]
  10. MORPHINE [Concomitant]

REACTIONS (13)
  - ADRENAL HAEMORRHAGE [None]
  - BLOOD CREATININE INCREASED [None]
  - BLOOD UREA INCREASED [None]
  - CARDIAC FAILURE [None]
  - GASTROINTESTINAL NECROSIS [None]
  - HAEMATOCRIT DECREASED [None]
  - HAEMOBILIA [None]
  - HAEMOGLOBIN DECREASED [None]
  - HEPATIC NECROSIS [None]
  - INTESTINAL ISCHAEMIA [None]
  - PANCREATITIS HAEMORRHAGIC [None]
  - PERITONEAL HAEMORRHAGE [None]
  - POST PROCEDURAL COMPLICATION [None]
